FAERS Safety Report 5275940-4 (Version None)
Quarter: 2007Q1

REPORT INFORMATION
  Report Type: 
  Country: None (occurrence: None)
  Receive Date: 20061213
  Receipt Date: 20060613
  Transmission Date: 20070707
  Serious: Yes (Hospitalization)
  Sender: FDA-Public Use
  Company Number: 2006UW09389

PATIENT
  Age: 49 Year
  Sex: Female
  Weight: 70.3075 kg

DRUGS (9)
  1. SEROQUEL [Suspect]
     Indication: BIPOLAR DISORDER
     Dosage: 400 MG BID; PO
     Route: 048
     Dates: start: 20060401, end: 20060503
  2. ACETAMINOPHEN AND OXYCODONE HCL [Concomitant]
  3. SYNTHROID [Concomitant]
  4. AMITRIPTYLINE HCL [Concomitant]
  5. ANABELAX [Concomitant]
  6. CLONAZEPAM [Concomitant]
  7. ELMIRON [Concomitant]
  8. NITROFURANTOIN [Concomitant]
  9. EFFEXOR [Concomitant]

REACTIONS (3)
  - COMPLEX PARTIAL SEIZURES [None]
  - CONVULSION [None]
  - INTENTIONAL OVERDOSE [None]
